FAERS Safety Report 10948892 (Version 3)
Quarter: 2015Q2

REPORT INFORMATION
  Report Type: Spontaneous
  Country: US (occurrence: US)
  Receive Date: 20150324
  Receipt Date: 20150515
  Transmission Date: 20150821
  Serious: No
  Sender: FDA-Public Use
  Company Number: US-PFIZER INC-2015098171

PATIENT
  Age: 50 Year
  Sex: Male
  Weight: 81.63 kg

DRUGS (3)
  1. AZITHROMYCIN [Suspect]
     Active Substance: AZITHROMYCIN ANHYDROUS
     Indication: NASAL CONGESTION
  2. TUMS [Concomitant]
     Active Substance: CALCIUM CARBONATE
     Indication: GASTRIC PH DECREASED
     Dosage: UNK
  3. AZITHROMYCIN [Suspect]
     Active Substance: AZITHROMYCIN ANHYDROUS
     Indication: NASOPHARYNGITIS
     Dosage: UNK

REACTIONS (1)
  - Rash generalised [Not Recovered/Not Resolved]
